FAERS Safety Report 8978220 (Version 1)
Quarter: 2012Q4

REPORT INFORMATION
  Report Type: 
  Country: CL (occurrence: CL)
  Receive Date: 20121221
  Receipt Date: 20121221
  Transmission Date: 20130627
  Serious: Yes (Hospitalization)
  Sender: FDA-Public Use
  Company Number: CL-MYLANLABS-2012S1025495

PATIENT
  Age: 65 Year
  Sex: Female

DRUGS (1)
  1. MELOXICAM [Suspect]
     Indication: TENDONITIS
     Dosage: 15 mg/day for 3 days
     Route: 065

REACTIONS (3)
  - Nephrotic syndrome [Recovered/Resolved]
  - Renal tubular necrosis [Recovered/Resolved]
  - Tubulointerstitial nephritis [Recovered/Resolved]
